FAERS Safety Report 4348548-2 (Version None)
Quarter: 2004Q2

REPORT INFORMATION
  Report Type: 
  Country: None (occurrence: None)
  Receive Date: 20040423
  Receipt Date: 20040413
  Transmission Date: 20050107
  Serious: Yes (Death, Other)
  Sender: FDA-Public Use
  Company Number: 04-125-0596

PATIENT
  Age: 48 Year
  Sex: Male

DRUGS (1)
  1. ETOPOSIDE [Suspect]
     Indication: SMALL CELL LUNG CANCER STAGE UNSPECIFIED
     Dosage: 270 MG IV
     Route: 042
     Dates: start: 20030825, end: 20031119

REACTIONS (4)
  - BACTERIAL INFECTION [None]
  - MUSCLE NECROSIS [None]
  - SEPTIC SHOCK [None]
  - VASCULAR OCCLUSION [None]
